FAERS Safety Report 20435751 (Version 2)
Quarter: 2023Q1

REPORT INFORMATION
  Report Type: Spontaneous
  Country: JP (occurrence: JP)
  Receive Date: 20220207
  Receipt Date: 20230202
  Transmission Date: 20230418
  Serious: Yes (Hospitalization)
  Sender: FDA-Public Use
  Company Number: JP-DSJP-DSJ-2020-125410

PATIENT
  Age: 9 Decade
  Sex: Female

DRUGS (1)
  1. DENOSUMAB [Suspect]
     Active Substance: DENOSUMAB
     Indication: Osteoporosis
     Dosage: 60 MILLIGRAM
     Route: 065
     Dates: start: 201810

REACTIONS (6)
  - Femoral neck fracture [Recovered/Resolved]
  - Gingival swelling [Not Recovered/Not Resolved]
  - Toothache [Unknown]
  - Swelling face [Unknown]
  - Mouth swelling [Unknown]
  - Dental caries [Not Recovered/Not Resolved]

NARRATIVE: CASE EVENT DATE: 20200101
